FAERS Safety Report 7892380-X (Version None)
Quarter: 2011Q4

REPORT INFORMATION
  Report Type: 
  Country: None (occurrence: None)
  Receive Date: 20111104
  Receipt Date: 20111026
  Transmission Date: 20120403
  Serious: Yes (Other)
  Sender: FDA-Public Use
  Company Number: FR-JNJFOC-20111012189

PATIENT
  Age: 59 Year
  Sex: Male

DRUGS (6)
  1. REMICADE [Suspect]
     Indication: PSORIATIC ARTHROPATHY
     Route: 042
     Dates: start: 20100301
  2. REMICADE [Suspect]
     Route: 042
     Dates: start: 20110926
  3. REMICADE [Suspect]
     Route: 042
     Dates: start: 20080101, end: 20090101
  4. REMICADE [Suspect]
     Route: 042
     Dates: start: 20080101, end: 20090101
  5. REMICADE [Suspect]
     Indication: PSORIASIS
     Route: 042
     Dates: start: 20110926
  6. REMICADE [Suspect]
     Route: 042
     Dates: start: 20100301

REACTIONS (1)
  - OESOPHAGEAL SQUAMOUS CELL CARCINOMA [None]
